FAERS Safety Report 5209077-7 (Version None)
Quarter: 2007Q1

REPORT INFORMATION
  Report Type: 
  Country: None (occurrence: None)
  Receive Date: 20070111
  Receipt Date: 20061228
  Transmission Date: 20070707
  Serious: Yes (Hospitalization)
  Sender: FDA-Public Use
  Company Number: SPV1-2006-02090

PATIENT
  Age: 20 Year
  Sex: Male

DRUGS (3)
  1. PENTASA [Suspect]
     Indication: CROHN'S DISEASE
     Dosage: 1000 MG 3XS DAILY, ORAL
     Route: 048
     Dates: start: 19960101
  2. PENTASA [Suspect]
     Indication: CROHN'S DISEASE
     Dosage: 1000 MG 3XS DAILY, ORAL
     Route: 048
     Dates: start: 20050331
  3. FLAGYL [Suspect]
     Indication: PERIANAL ABSCESS
     Dosage: 250 MG 3XS DAILY, ORAL
     Route: 048
     Dates: start: 20050616, end: 20050910

REACTIONS (2)
  - ENTEROVESICAL FISTULA [None]
  - NEPHRITIS [None]
